FAERS Safety Report 8799422 (Version 1)
Quarter: 2012Q4

REPORT INFORMATION
  Report Type: 
  Country: AU (occurrence: AU)
  Receive Date: 20120919
  Receipt Date: 20120919
  Transmission Date: 20130627
  Serious: Yes (Other)
  Sender: FDA-Public Use
  Company Number: PHHY2012AU081032

PATIENT
  Age: 49 Year
  Sex: Male

DRUGS (1)
  1. RITALIN [Suspect]
     Dosage: UNK UKN, UNK

REACTIONS (1)
  - Locked-in syndrome [Unknown]
